FAERS Safety Report 8299332-9 (Version None)
Quarter: 2012Q2

REPORT INFORMATION
  Report Type: 
  Country: None (occurrence: None)
  Receive Date: 20120419
  Receipt Date: 20120413
  Transmission Date: 20120825
  Serious: Yes (Hospitalization)
  Sender: FDA-Public Use
  Company Number: JP-ABBOTT-12P-087-0925738-00

PATIENT
  Sex: Male
  Weight: 52 kg

DRUGS (15)
  1. LIMAPROST ALFADEX [Concomitant]
     Indication: PRODUCT USED FOR UNKNOWN INDICATION
     Dosage: 10 MCG DAILY DOSE
     Dates: start: 20110201
  2. HUMIRA [Suspect]
     Indication: RHEUMATOID ARTHRITIS
     Route: 058
     Dates: start: 20100720, end: 20111107
  3. OMEPRAZOLE [Concomitant]
     Indication: PRODUCT USED FOR UNKNOWN INDICATION
     Dosage: 20 MG DAILY DOSE
     Dates: start: 20100720
  4. DICLOFENAC SODIUM [Concomitant]
     Dosage: 37.5 MG DAILY DOSE
     Dates: start: 20100720
  5. PREGABALIN [Concomitant]
     Indication: PRODUCT USED FOR UNKNOWN INDICATION
     Dosage: 50 MG DAILY DOSE
     Dates: start: 20110903, end: 20111121
  6. TIZANIDINE HYDROCHLORIDE [Concomitant]
     Indication: SPINAL OSTEOARTHRITIS
     Dosage: 2 MG DAILY DOSE
     Dates: start: 20100720
  7. DICLOFENAC SODIUM [Concomitant]
     Indication: RHEUMATOID ARTHRITIS
     Dosage: 37.5 MG DAILY DOSE
     Dates: end: 20120131
  8. PROPAFENONE HYDROCHLORIDE [Concomitant]
     Indication: PRODUCT USED FOR UNKNOWN INDICATION
     Dosage: 200 MG DAILY DOSE
     Dates: start: 20100720
  9. VERAPAMIL HYDROCHLORIDE [Concomitant]
     Indication: PRODUCT USED FOR UNKNOWN INDICATION
     Dosage: 80 MG DAILY DOSE
     Dates: start: 20100720
  10. BROTIZOLAM [Concomitant]
     Indication: INSOMNIA
     Dosage: 0.25 MG DAILY DOSE
     Dates: start: 20100720
  11. SHAKUYAKUKANZOTO [Concomitant]
     Indication: MUSCLE SPASMS
     Dosage: 2.5 GM DAILY DOSE
     Dates: start: 20110524
  12. TACROLIMUS [Concomitant]
     Indication: RHEUMATOID ARTHRITIS
     Dosage: 1 MG DAILY DOSE
     Dates: start: 20101207, end: 20111107
  13. AN EXTRACT FROM INFLAMMATORY RABBIT SKIN INOCULATED BY VACCINIA VIRUS [Concomitant]
     Indication: PRODUCT USED FOR UNKNOWN INDICATION
     Dates: start: 20111122
  14. HUMIRA [Suspect]
     Dates: start: 20111108
  15. EPINASTINE HYDROCHLORIDE [Concomitant]
     Indication: ALLERGY PROPHYLAXIS
     Dosage: 20 MG DAILY DOSE
     Dates: start: 20100720

REACTIONS (1)
  - NEPHROTIC SYNDROME [None]
